FAERS Safety Report 9163350 (Version 2)
Quarter: 2013Q4

REPORT INFORMATION
  Report Type: Spontaneous
  Country: GR (occurrence: GR)
  Receive Date: 20130314
  Receipt Date: 20131024
  Transmission Date: 20140711
  Serious: Yes (Death)
  Sender: FDA-Public Use
  Company Number: GR-B.I. PHARMACEUTICALS,INC./RIDGEFIELD-2013-BI-06575NE

PATIENT
  Age: 65 Year
  Sex: Male

DRUGS (6)
  1. PRADAXA [Suspect]
     Indication: ATRIAL FIBRILLATION
     Dosage: 220 MG
     Route: 048
     Dates: start: 201301, end: 201303
  2. UNSPECIFIED DRUG FOR HYPERTENSION [Concomitant]
     Indication: HYPERTENSION
  3. UNSPECIFIED DRUG FOR HYPERCHOLESTEROLEMIA [Concomitant]
     Indication: HYPERCHOLESTEROLAEMIA
  4. UNSPECIFIED BETA-ADRENERGIC BLOCKER [Concomitant]
     Indication: HYPERTENSION
  5. UNSPECIFIED ALPHA-ADRENERGIC ANTAGONIST [Concomitant]
     Indication: HYPERTENSION
  6. UNSPECIFIED STATIN MEDICINAL PRODUCT [Concomitant]
     Indication: DYSLIPIDAEMIA

REACTIONS (4)
  - Cerebral haemorrhage [Fatal]
  - Headache [Fatal]
  - Gait disturbance [Fatal]
  - Syncope [Fatal]
